FAERS Safety Report 25609556 (Version 2)
Quarter: 2025Q4

REPORT INFORMATION
  Report Type: Report from Study
  Country: US (occurrence: US)
  Receive Date: 20250728
  Receipt Date: 20251020
  Transmission Date: 20260117
  Serious: Yes (Other)
  Sender: ALEXION PHARMACEUTICALS
  Company Number: US-AstraZeneca-CH-00915881A

PATIENT
  Sex: Female
  Weight: 109.77 kg

DRUGS (24)
  1. TEZEPELUMAB [Suspect]
     Active Substance: TEZEPELUMAB
     Indication: Asthma
     Dosage: 210 MILLIGRAM PER MILLILITRE, Q4W
  2. TEZEPELUMAB [Suspect]
     Active Substance: TEZEPELUMAB
  3. ALBUTEROL SULFATE [Concomitant]
     Active Substance: ALBUTEROL SULFATE
     Dosage: 25 EVERY 6 HRS
  4. Alegra [Concomitant]
     Dosage: TAKE 1 TABLET BY MOU?N TWICE DAILY
  5. BUDESONIDE [Concomitant]
     Active Substance: BUDESONIDE
     Dosage: LNHAIATION TWICE A DAY
  6. BUPROPION [Concomitant]
     Active Substance: BUPROPION
  7. CLONAZEPAM [Concomitant]
     Active Substance: CLONAZEPAM
     Dosage: 1 MG TABLET TAKE 1 TABLET BY MOUTH TWICE DAILYAS NEEDED FOR ANXIETY
  8. DICLOFENAC SODIUM [Concomitant]
     Active Substance: DICLOFENAC SODIUM
     Dosage: TAKE 1 TABLET BY MOUTH TWICE DAILY
  9. DOXYCYCLINE HYCLATE [Concomitant]
     Active Substance: DOXYCYCLINE HYCLATE
     Dosage: MG CAPSULE TAKE 1 CAPSULE BY MOUTH TWICE
  10. FLUTICASONE PROPIONATE [Concomitant]
     Active Substance: FLUTICASONE PROPIONATE
     Dosage: EACH NOSTRIL EVERYDAY
  11. LOSARTAN POTASSIUM [Concomitant]
     Active Substance: LOSARTAN POTASSIUM
     Dosage: 12.5 MG TABLET 1 TABLET DALLY ONCE A DAY
  12. LEVOFLOXACIN [Concomitant]
     Active Substance: LEVOFLOXACIN
     Dosage: 750 MG TABLET TAKE 1 TABLET BY MOUTH ONCE DAILY
  13. MAGNESIUM [Concomitant]
     Active Substance: MAGNESIUM
     Dosage: 400 MG TABLET AS DIRECTED + DAALLY
  14. METFORMIN HYDROCHLORIDE [Concomitant]
     Active Substance: METFORMIN HYDROCHLORIDE
     Dosage: 1000 MG TABLET TAKE 1 TABLET BY MOUTH TWICE DAILY
  15. NAPROXEN [Concomitant]
     Active Substance: NAPROXEN
     Dosage: TABLET TAKE 1 TABLET BY MOUTH
  16. ONDANSETRON [Concomitant]
     Active Substance: ONDANSETRON
     Dosage: 4 MG TABLET TAKE 1 TABLET BY MOUTH TWICE DAILY
  17. SYMBICORT [Concomitant]
     Active Substance: BUDESONIDE\FORMOTEROL FUMARATE DIHYDRATE
     Dosage: INHALE 2 PUFFS
  18. PREDNISONE [Concomitant]
     Active Substance: PREDNISONE
     Dosage: 10 MG TABLET TAKE 4 TABLETS
  19. OXYCODONE [Concomitant]
     Active Substance: OXYCODONE
     Dosage: 5 MG TABLE+KE 1 TABLET EVERY8
  20. MONTELUKAST [Concomitant]
     Active Substance: MONTELUKAST
     Dosage: 10 MG TABLET TAKE 1 TABLET BY MOUTH ONCE DAILY
  21. ROSUVASTATIN CALCIUM [Concomitant]
     Active Substance: ROSUVASTATIN CALCIUM
     Dosage: 40 MG TABLET 1 TABLET GALLY ONCE A DAY
  22. NURTEC ODT [Concomitant]
     Active Substance: RIMEGEPANT SULFATE
     Dosage: 75 MG TABLET DISINTEGRATING 1 TABLET ON THE TONGUE AND ALLOW TO DISSOLVE DALLY
  23. ZOLPIDEM TARTRATE [Concomitant]
     Active Substance: ZOLPIDEM TARTRATE
     Dosage: TABLET 1 TABLET AT BEDTIME AS NEEDED FOR SLEEP ORALLY ONCE A DAY
  24. VICTOZA [Concomitant]
     Active Substance: LIRAGLUTIDE

REACTIONS (2)
  - Diabetes mellitus [Recovering/Resolving]
  - Neuropathy peripheral [Recovering/Resolving]
